FAERS Safety Report 16161672 (Version 2)
Quarter: 2019Q2

REPORT INFORMATION
  Report Type: Spontaneous
  Country: US (occurrence: US)
  Receive Date: 20190405
  Receipt Date: 20190625
  Transmission Date: 20190711
  Serious: No
  Sender: FDA-Public Use
  Company Number: US-PFIZER INC-2019144452

PATIENT
  Age: 44 Year
  Sex: Female
  Weight: 61.23 kg

DRUGS (4)
  1. NORTRIPTYLINE [Suspect]
     Active Substance: NORTRIPTYLINE
     Indication: SLEEP DISORDER
     Dosage: 25 MG, UNK (X4, 25MG)
     Dates: start: 2015
  2. BACLOFEN ACTAVIS [Suspect]
     Active Substance: BACLOFEN
     Indication: SLEEP DISORDER
     Dosage: 10 MG, UNK
     Dates: start: 2014
  3. IBUPROFEN. [Suspect]
     Active Substance: IBUPROFEN
     Indication: NEUROPATHY PERIPHERAL
     Dosage: UNK, 3X/DAY
     Dates: start: 2012
  4. ASPIRIN. [Suspect]
     Active Substance: ASPIRIN
     Dosage: UNK

REACTIONS (3)
  - Abdominal pain upper [Unknown]
  - Dyspepsia [Unknown]
  - Chest pain [Not Recovered/Not Resolved]
